FAERS Safety Report 17859793 (Version 2)
Quarter: 2020Q2

REPORT INFORMATION
  Report Type: Spontaneous
  Country: US (occurrence: US)
  Receive Date: 20200604
  Receipt Date: 20200605
  Transmission Date: 20200714
  Serious: Yes (Other)
  Sender: FDA-Public Use
  Company Number: US-PFIZER INC-2020074243

PATIENT
  Age: 57 Year
  Sex: Female
  Weight: 117.03 kg

DRUGS (3)
  1. NALBUPHINE HYDROCHLORIDE. [Suspect]
     Active Substance: NALBUPHINE HYDROCHLORIDE
     Indication: NERVE COMPRESSION
  2. NALBUPHINE HYDROCHLORIDE. [Suspect]
     Active Substance: NALBUPHINE HYDROCHLORIDE
     Indication: MIGRAINE
     Dosage: 1 ML, 4X/DAY (20 MG/10 ML VIAL)
     Route: 058
  3. NALBUPHINE HYDROCHLORIDE. [Suspect]
     Active Substance: NALBUPHINE HYDROCHLORIDE
     Indication: INTERVERTEBRAL DISC PROTRUSION

REACTIONS (5)
  - Malaise [Unknown]
  - Sneezing [Unknown]
  - Blindness [Unknown]
  - Immune system disorder [Unknown]
  - Intentional product use issue [Unknown]
